FAERS Safety Report 14539731 (Version 2)
Quarter: 2018Q1

REPORT INFORMATION
  Report Type: Spontaneous
  Country: AU (occurrence: AU)
  Receive Date: 20180216
  Receipt Date: 20180314
  Transmission Date: 20180509
  Serious: Yes (Other)
  Sender: FDA-Public Use
  Company Number: AU-ASTRAZENECA-2018SE20155

PATIENT
  Sex: Female

DRUGS (2)
  1. OSIMERTINIB. [Suspect]
     Active Substance: OSIMERTINIB
     Dosage: 80.0MG UNKNOWN
     Route: 048
     Dates: start: 20170328
  2. GEFITINIB. [Suspect]
     Active Substance: GEFITINIB
     Route: 048

REACTIONS (2)
  - Disease progression [Unknown]
  - Chest pain [Recovered/Resolved]
